FAERS Safety Report 6979479-7 (Version None)
Quarter: 2010Q3

REPORT INFORMATION
  Report Type: 
  Country: None (occurrence: None)
  Receive Date: 20100910
  Receipt Date: 20100910
  Transmission Date: 20110219
  Serious: Yes (Death)
  Sender: FDA-Public Use
  Company Number: None

PATIENT
  Age: 54 Year
  Sex: Female
  Weight: 49.8957 kg

DRUGS (1)
  1. HUMIRA [Suspect]
     Indication: RHEUMATOID ARTHRITIS
     Dosage: ONCE A MONTH PEN INJECTION APPROX 6 MONTH BEFORE DEATH

REACTIONS (3)
  - HEART INJURY [None]
  - INTESTINAL HAEMORRHAGE [None]
  - MYOCARDIAL INFARCTION [None]
